FAERS Safety Report 6538822-3 (Version None)
Quarter: 2010Q1

REPORT INFORMATION
  Report Type: 
  Country: None (occurrence: None)
  Receive Date: 20100114
  Receipt Date: 20100114
  Transmission Date: 20100710
  Serious: Yes (Hospitalization)
  Sender: FDA-Public Use
  Company Number: None

PATIENT
  Sex: Female
  Weight: 58.5 kg

DRUGS (7)
  1. ABRAXANE [Suspect]
     Indication: PANCREATIC CARCINOMA
     Dosage: 166 MG D1 D6 D15/CYCLE 042
     Dates: start: 20091008, end: 20091217
  2. VANDETANIB [Suspect]
     Indication: PANCREATIC CARCINOMA
     Dosage: 300 MG QD 047
     Dates: start: 20091008, end: 20091227
  3. AMLODIPINE [Concomitant]
  4. PROCHLORPERAZINE [Concomitant]
  5. LOMOTIL [Concomitant]
  6. PANCRELIPASE [Concomitant]
  7. ATIVAN [Concomitant]

REACTIONS (4)
  - ABDOMINAL PAIN [None]
  - BACTERIAL TEST POSITIVE [None]
  - NAUSEA [None]
  - VOMITING [None]
